FAERS Safety Report 7333158-5 (Version None)
Quarter: 2011Q1

REPORT INFORMATION
  Report Type: 
  Country: None (occurrence: None)
  Receive Date: 20110304
  Receipt Date: 20110222
  Transmission Date: 20110831
  Serious: Yes (Hospitalization)
  Sender: FDA-Public Use
  Company Number: IT-PERRIGO-11IT001585

PATIENT
  Age: 11 Month
  Sex: Male
  Weight: 10 kg

DRUGS (3)
  1. ACETAMINOPHEN [Suspect]
     Indication: PYREXIA
     Dosage: 12.5 MG/KG, EVERY 6 HOURS
     Route: 054
  2. CLARITHROYMCIN [Concomitant]
     Indication: UPPER RESPIRATORY TRACT INFECTION
     Dosage: 15 MG/KG, QD
     Route: 065
  3. ACETAMINOPHEN [Suspect]
     Indication: PYREXIA
     Dosage: 12 MG/KG, Q 4 HOURS, ORAL
     Route: 048

REACTIONS (11)
  - JAUNDICE [None]
  - ALANINE AMINOTRANSFERASE INCREASED [None]
  - GAMMA-GLUTAMYLTRANSFERASE INCREASED [None]
  - LETHARGY [None]
  - LIVER INJURY [None]
  - BLOOD LACTATE DEHYDROGENASE INCREASED [None]
  - ENCEPHALOPATHY [None]
  - C-REACTIVE PROTEIN INCREASED [None]
  - HEPATITIS FULMINANT [None]
  - RETCHING [None]
  - ASPARTATE AMINOTRANSFERASE INCREASED [None]
